FAERS Safety Report 8841394 (Version 2)
Quarter: 2012Q4

REPORT INFORMATION
  Report Type: 
  Country: US (occurrence: US)
  Receive Date: 20121015
  Receipt Date: 20121022
  Transmission Date: 20130627
  Serious: Yes (Death, Hospitalization)
  Sender: FDA-Public Use
  Company Number: US-ASTELLAS-2012US010091

PATIENT
  Age: 78 Year
  Sex: Female
  Weight: 77 kg

DRUGS (2)
  1. PROGRAF [Suspect]
     Indication: RENAL TRANSPLANT
     Dosage: 4.5 mg, bid
     Route: 048
     Dates: start: 20120125, end: 20121004
  2. PROGRAF [Suspect]
     Dosage: 4 mg, bid
     Route: 048
     Dates: start: 20070812

REACTIONS (1)
  - Aneurysm [Fatal]
